FAERS Safety Report 9845910 (Version 2)
Quarter: 2014Q1

REPORT INFORMATION
  Report Type: Spontaneous
  Country: US (occurrence: US)
  Receive Date: 20140127
  Receipt Date: 20140312
  Transmission Date: 20141002
  Serious: No
  Sender: FDA-Public Use
  Company Number: US-PFIZER INC-2014022360

PATIENT
  Age: 70 Year
  Sex: Female
  Weight: 99.77 kg

DRUGS (2)
  1. OXAPROZIN [Suspect]
     Indication: OSTEOARTHRITIS
     Dosage: 600 MG, 2X/DAY
     Route: 048
  2. TYLENOL [Concomitant]
     Dosage: AS NEEDED

REACTIONS (2)
  - Drug ineffective [Unknown]
  - Hypoaesthesia [Unknown]
